FAERS Safety Report 7026832-1 (Version None)
Quarter: 2010Q4

REPORT INFORMATION
  Report Type: 
  Country: None (occurrence: None)
  Receive Date: 20101004
  Receipt Date: 20100409
  Transmission Date: 20110411
  Serious: No
  Sender: FDA-Public Use
  Company Number: US-BAYER-201020889BCC

PATIENT
  Age: 3 Year
  Sex: Female

DRUGS (2)
  1. ALEVE [Suspect]
     Indication: ACCIDENTAL DRUG INTAKE BY CHILD
     Route: 048
     Dates: start: 20100409
  2. AMOXICILLIN [Concomitant]
     Indication: EAR INFECTION

REACTIONS (1)
  - NO ADVERSE EVENT [None]
